FAERS Safety Report 21323371 (Version 1)
Quarter: 2022Q3

REPORT INFORMATION
  Report Type: Spontaneous
  Country: US (occurrence: None)
  Receive Date: 20220910
  Receipt Date: 20220910
  Transmission Date: 20221026
  Serious: Yes (Hospitalization, Disabling)
  Sender: FDA-Public Use
  Company Number: None

PATIENT
  Age: 43 Year
  Sex: Female
  Weight: 99 kg

DRUGS (8)
  1. BOTOX [Suspect]
     Active Substance: ONABOTULINUMTOXINA
     Indication: Migraine
     Dates: start: 20210511, end: 20220518
  2. VYVANSE [Concomitant]
     Active Substance: LISDEXAMFETAMINE DIMESYLATE
  3. ZOLOFT [Concomitant]
     Active Substance: SERTRALINE HYDROCHLORIDE
  4. prozasin [Concomitant]
  5. meclazine [Concomitant]
  6. PROMETHAZINE [Concomitant]
     Active Substance: PROMETHAZINE HYDROCHLORIDE
  7. Motion ez [Concomitant]
  8. nausea wrist band [Concomitant]

REACTIONS (11)
  - Musculoskeletal stiffness [None]
  - Headache [None]
  - Nausea [None]
  - Asthenia [None]
  - Dizziness [None]
  - Eyelid ptosis [None]
  - Bedridden [None]
  - Vertigo [None]
  - Temporomandibular joint syndrome [None]
  - Impaired driving ability [None]
  - Adverse drug reaction [None]

NARRATIVE: CASE EVENT DATE: 20220518
